FAERS Safety Report 6004284-8 (Version None)
Quarter: 2008Q4

REPORT INFORMATION
  Report Type: 
  Country: None (occurrence: None)
  Receive Date: 20081216
  Receipt Date: 20081208
  Transmission Date: 20090506
  Serious: Yes (Hospitalization)
  Sender: FDA-Public Use
  Company Number: US-BAYER-200814817BCC

PATIENT
  Age: 78 Year
  Sex: Female
  Weight: 84 kg

DRUGS (1)
  1. ASPIRIN [Suspect]
     Indication: ANALGESIA
     Route: 048

REACTIONS (3)
  - ABASIA [None]
  - DIZZINESS [None]
  - FALL [None]
